FAERS Safety Report 6297385-0 (Version None)
Quarter: 2009Q3

REPORT INFORMATION
  Report Type: 
  Country: None (occurrence: None)
  Receive Date: 20090805
  Receipt Date: 20090730
  Transmission Date: 20100115
  Serious: Yes (Death, Hospitalization)
  Sender: FDA-Public Use
  Company Number: PHHY2008JP15089

PATIENT
  Sex: Male
  Weight: 53 kg

DRUGS (7)
  1. SIMULECT [Suspect]
     Indication: RENAL TRANSPLANT
     Dosage: 20 MG, ONCE/SINGLE
     Route: 042
     Dates: start: 20050206, end: 20050206
  2. SIMULECT [Suspect]
     Dosage: 20 MG, ONCE/SINGLE
     Route: 042
     Dates: start: 20050210, end: 20050210
  3. PROGRAF [Suspect]
     Indication: RENAL TRANSPLANT
     Dosage: 2.5 MG
     Route: 042
     Dates: start: 20050206, end: 20050213
  4. PROGRAF [Suspect]
     Dosage: 20 MG
     Route: 048
     Dates: start: 20050213, end: 20050530
  5. CELLCEPT [Suspect]
     Indication: RENAL TRANSPLANT
     Dosage: 1 G/DAY
     Route: 048
     Dates: start: 20050206, end: 20050605
  6. MEDROL [Suspect]
     Indication: RENAL TRANSPLANT
     Dosage: 40 MG/DAY
     Route: 048
     Dates: start: 20050206
  7. SOLU-MEDROL [Concomitant]
     Indication: RENAL TRANSPLANT
     Dosage: 500 MG
     Route: 042
     Dates: start: 20050206

REACTIONS (5)
  - ABSCESS DRAINAGE [None]
  - BLOOD UREA INCREASED [None]
  - CONCOMITANT DISEASE AGGRAVATED [None]
  - HEPATIC CIRRHOSIS [None]
  - PELVIC ABSCESS [None]
